FAERS Safety Report 18906200 (Version 2)
Quarter: 2021Q3

REPORT INFORMATION
  Report Type: Spontaneous
  Country: US (occurrence: US)
  Receive Date: 20210217
  Receipt Date: 20210727
  Transmission Date: 20211014
  Serious: Yes (Other)
  Sender: FDA-Public Use
  Company Number: US-TEVA-2021-US-1879744

PATIENT
  Age: 34 Year
  Sex: Female

DRUGS (14)
  1. CITALOPRAM [Concomitant]
     Active Substance: CITALOPRAM HYDROBROMIDE
     Indication: NEUROPATHY PERIPHERAL
     Route: 065
  2. CITALOPRAM [Concomitant]
     Active Substance: CITALOPRAM HYDROBROMIDE
     Indication: POST-TRAUMATIC NEURALGIA
  3. OXYCODONE [Concomitant]
     Active Substance: OXYCODONE
     Indication: POST-TRAUMATIC NEURALGIA
     Dosage: FORMULATION: IMMEDIATE RELEASE
     Route: 065
  4. GABAPENTIN. [Suspect]
     Active Substance: GABAPENTIN
     Indication: NEUROPATHY PERIPHERAL
     Route: 065
  5. OXYCODONE [Concomitant]
     Active Substance: OXYCODONE
     Indication: NEUROPATHY PERIPHERAL
     Dosage: FORMULATION: EXTENDED RELEASE
     Route: 065
  6. DULOXETINE. [Suspect]
     Active Substance: DULOXETINE
     Indication: POST-TRAUMATIC NEURALGIA
  7. PREGABALIN. [Suspect]
     Active Substance: PREGABALIN
     Indication: NEUROPATHY PERIPHERAL
     Route: 065
  8. DULOXETINE. [Suspect]
     Active Substance: DULOXETINE
     Indication: NEUROPATHY PERIPHERAL
     Route: 065
  9. CYCLOBENZAPRINE. [Concomitant]
     Active Substance: CYCLOBENZAPRINE
     Indication: POST-TRAUMATIC NEURALGIA
  10. GABAPENTIN. [Suspect]
     Active Substance: GABAPENTIN
     Indication: POST-TRAUMATIC NEURALGIA
  11. LIDOCAINE. [Suspect]
     Active Substance: LIDOCAINE
     Indication: POST-TRAUMATIC NEURALGIA
  12. CYCLOBENZAPRINE. [Concomitant]
     Active Substance: CYCLOBENZAPRINE
     Indication: NEUROPATHY PERIPHERAL
     Route: 065
  13. PREGABALIN. [Suspect]
     Active Substance: PREGABALIN
     Indication: POST-TRAUMATIC NEURALGIA
  14. LIDOCAINE. [Suspect]
     Active Substance: LIDOCAINE
     Indication: NEUROPATHY PERIPHERAL
     Route: 041

REACTIONS (5)
  - Drug ineffective [Unknown]
  - Headache [Unknown]
  - Mood altered [Unknown]
  - Weight increased [Unknown]
  - Cognitive disorder [Unknown]
